FAERS Safety Report 22053135 (Version 1)
Quarter: 2023Q1

REPORT INFORMATION
  Report Type: Spontaneous
  Country: US (occurrence: None)
  Receive Date: 20230301
  Receipt Date: 20230301
  Transmission Date: 20230417
  Serious: Yes (Hospitalization)
  Sender: FDA-Public Use
  Company Number: None

PATIENT
  Age: 79 Year
  Sex: Male

DRUGS (8)
  1. ABIRATERONE ACETATE [Suspect]
     Active Substance: ABIRATERONE ACETATE
  2. B COMPLEX CAP [Concomitant]
  3. CALCIUM POW CITRATE [Concomitant]
  4. CALCIUM [Concomitant]
     Active Substance: CALCIUM
  5. MODAFINIL TAB [Concomitant]
  6. NIACINAMIDE TAB [Concomitant]
  7. VITAMIN D TAB [Concomitant]
  8. VITAMIN D3 POW [Concomitant]

REACTIONS (1)
  - Head injury [None]

NARRATIVE: CASE EVENT DATE: 20230226
